FAERS Safety Report 6633373-X (Version None)
Quarter: 2010Q1

REPORT INFORMATION
  Report Type: 
  Country: None (occurrence: None)
  Receive Date: 20100312
  Receipt Date: 20100302
  Transmission Date: 20100710
  Serious: Yes (Other)
  Sender: FDA-Public Use
  Company Number: US-PFIZER INC-2006073170

PATIENT
  Sex: Female
  Weight: 73.923 kg

DRUGS (8)
  1. NEURONTIN [Suspect]
     Indication: PAIN
     Dosage: 600 MG, 5X/DAY
     Route: 048
     Dates: start: 20050101
  2. NEURONTIN [Suspect]
     Indication: INFLAMMATION
  3. ABILIFY [Concomitant]
     Route: 065
  4. AMITRIPTYLINE HCL [Concomitant]
     Route: 065
  5. KLONOPIN [Concomitant]
     Route: 065
  6. OMEPRAZOLE [Concomitant]
     Dosage: UNK
  7. LOVASTATIN [Concomitant]
     Dosage: UNK
  8. FLEXERIL [Concomitant]
     Dosage: UNK

REACTIONS (7)
  - AMNESIA [None]
  - BACK PAIN [None]
  - BIPOLAR DISORDER [None]
  - HUNGER [None]
  - NERVE BLOCK [None]
  - PARAESTHESIA [None]
  - WEIGHT INCREASED [None]
